FAERS Safety Report 15898456 (Version 7)
Quarter: 2019Q3

REPORT INFORMATION
  Report Type: Spontaneous
  Country: CZ (occurrence: CZ)
  Receive Date: 20190201
  Receipt Date: 20190806
  Transmission Date: 20191004
  Serious: Yes (Life-Threatening, Hospitalization, Other)
  Sender: FDA-Public Use
  Company Number: CZ-ACCORD-104245

PATIENT
  Age: 60 Year
  Sex: Female

DRUGS (7)
  1. OXALIPLATIN. [Suspect]
     Active Substance: OXALIPLATIN
     Indication: CHOLANGIOCARCINOMA
     Dosage: LAST DOSE RECEIVED ON JAN-2018
     Route: 042
     Dates: start: 201708, end: 201801
  2. FLUOROURACIL. [Suspect]
     Active Substance: FLUOROURACIL
     Indication: CHOLANGIOCARCINOMA
     Dates: start: 201708, end: 201801
  3. CAPECITABINE. [Suspect]
     Active Substance: CAPECITABINE
     Indication: CHOLANGIOCARCINOMA
     Dates: start: 201802
  4. CARBOPLATIN. [Suspect]
     Active Substance: CARBOPLATIN
     Indication: CHOLANGIOCARCINOMA
     Route: 042
     Dates: start: 201611, end: 201703
  5. GEMCITABINE/GEMCITABINE HYDROCHLORIDE [Suspect]
     Active Substance: GEMCITABINE\GEMCITABINE HYDROCHLORIDE
     Indication: CHOLANGIOCARCINOMA
     Dosage: 3 SERIES OF CHEMOTHERAPY DDP / GEMCITABINE
     Route: 042
     Dates: start: 201410, end: 201411
  6. FOLINIC ACID [Suspect]
     Active Substance: LEUCOVORIN
     Indication: CHOLANGIOCARCINOMA
     Dosage: 8 SERIES OF FOLFOX CHEMOTHERAPY
     Route: 042
     Dates: start: 201708, end: 201801
  7. CISPLATIN. [Suspect]
     Active Substance: CISPLATIN
     Indication: CHOLANGIOCARCINOMA
     Dosage: 3 SERIES OF CHEMOTHERAPY DDP / GEMCITABINE
     Route: 042
     Dates: start: 201410, end: 201411

REACTIONS (7)
  - Thrombocytopenia [Recovered/Resolved]
  - Oral candidiasis [Unknown]
  - Paraesthesia [Recovered/Resolved]
  - Anaemia [Recovered/Resolved]
  - Neutropenia [Recovered/Resolved]
  - Renal failure [Unknown]
  - Neurotoxicity [Unknown]

NARRATIVE: CASE EVENT DATE: 2014
